FAERS Safety Report 5162934-2 (Version None)
Quarter: 2006Q4

REPORT INFORMATION
  Report Type: 
  Country: None (occurrence: None)
  Receive Date: 20061201
  Receipt Date: 20061005
  Transmission Date: 20070319
  Serious: Yes (Hospitalization)
  Sender: FDA-Public Use
  Company Number: JP-SANOFI-SYNTHELABO-A01200609383

PATIENT
  Age: 38 Year
  Sex: Female
  Weight: 60 kg

DRUGS (10)
  1. ALESION [Concomitant]
     Indication: DRUG USE FOR UNKNOWN INDICATION
     Dosage: 20 MG
     Route: 048
  2. EURODIN [Concomitant]
     Indication: DRUG USE FOR UNKNOWN INDICATION
     Dosage: 2 MG
     Route: 048
  3. RIZE [Concomitant]
     Indication: NEUROSIS
     Dosage: 15 MG
     Route: 048
  4. FLOMOX [Concomitant]
     Indication: INFECTION
     Dosage: UNK
     Route: 048
     Dates: start: 20060918, end: 20060920
  5. BRUFEN [Concomitant]
     Indication: INFECTION
     Dosage: UNK
     Route: 048
     Dates: start: 20060918, end: 20060920
  6. RULID [Concomitant]
     Indication: INFECTION
     Dosage: UNK
     Route: 048
     Dates: start: 20060918, end: 20060920
  7. MARZULENE S [Concomitant]
     Indication: INFECTION
     Dosage: UNK
     Route: 048
     Dates: start: 20060918, end: 20060920
  8. PAXIL [Concomitant]
     Indication: DEPRESSION
     Route: 048
  9. MYSLEE [Suspect]
     Indication: DRUG USE FOR UNKNOWN INDICATION
     Dosage: 10 MG
     Route: 048
  10. DOGMATYL [Suspect]
     Indication: NEUROSIS
     Dosage: 150 MG
     Route: 048

REACTIONS (3)
  - EOSINOPHILIC PNEUMONIA [None]
  - HYPOXIA [None]
  - PYREXIA [None]
